FAERS Safety Report 19907159 (Version 1)
Quarter: 2021Q4

REPORT INFORMATION
  Report Type: Spontaneous
  Country: US (occurrence: US)
  Receive Date: 20211001
  Receipt Date: 20211001
  Transmission Date: 20220303
  Serious: No
  Sender: FDA-Public Use
  Company Number: None

PATIENT
  Age: 33 Year
  Sex: Female
  Weight: 103.05 kg

DRUGS (5)
  1. WEGOVY [Suspect]
     Active Substance: SEMAGLUTIDE
     Indication: Insulin resistant diabetes
     Dosage: ?QUANTITY:1 INJECTION(S);?OTHER FREQUENCY:WEEKLY;
     Route: 030
  2. PHENTERMINE [Concomitant]
     Active Substance: PHENTERMINE
  3. LEXAPRO [Concomitant]
     Active Substance: ESCITALOPRAM OXALATE
  4. VITAMIN D3 [Concomitant]
     Active Substance: CHOLECALCIFEROL
  5. JWH-018 [Concomitant]
     Active Substance: JWH-018

REACTIONS (6)
  - Gastroenteritis viral [None]
  - Nausea [None]
  - Muscle spasms [None]
  - Abdominal distension [None]
  - Pain [None]
  - Therapy change [None]

NARRATIVE: CASE EVENT DATE: 20210928
